FAERS Safety Report 6023374-7 (Version None)
Quarter: 2008Q4

REPORT INFORMATION
  Report Type: 
  Country: None (occurrence: None)
  Receive Date: 20081230
  Receipt Date: 20081219
  Transmission Date: 20090506
  Serious: Yes (Hospitalization, Other)
  Sender: FDA-Public Use
  Company Number: US-WATSON-2008-07469

PATIENT
  Sex: Male
  Weight: 68.027 kg

DRUGS (10)
  1. FERRLECIT [Suspect]
     Indication: IRON DEFICIENCY ANAEMIA
     Dosage: 125 MG OVER 50CC/HOUR
     Route: 042
     Dates: start: 20081126, end: 20081126
  2. FERRLECIT [Suspect]
     Dosage: 250 MG, OVER 90 MINUTES
     Route: 042
     Dates: start: 20081114, end: 20081114
  3. FERRLECIT [Suspect]
     Dosage: 250 MG, OVER 60-120 MINUTES, ^MAYBE OVER 2 HOURS^
     Route: 042
     Dates: start: 20081031, end: 20081031
  4. TYLENOL W/ CODEINE [Concomitant]
     Indication: PAIN
     Dosage: UNK
     Route: 048
  5. ASCORBIC ACID [Concomitant]
     Indication: SUPPLEMENTATION THERAPY
     Dosage: UNK
     Route: 048
  6. FOLIC ACID [Concomitant]
     Indication: SUPPLEMENTATION THERAPY
     Dosage: UNK
     Route: 048
  7. OMEPRAZOLE [Concomitant]
     Indication: DRUG USE FOR UNKNOWN INDICATION
     Dosage: UNK
     Route: 048
  8. ATENOLOL [Concomitant]
     Indication: HYPERTENSION
     Dosage: 1 TABLET, DAILY
     Route: 048
  9. ASPIRIN [Concomitant]
     Indication: DRUG USE FOR UNKNOWN INDICATION
     Dosage: 81 MG, DAILY
     Route: 048
  10. HYDROCHLOROTHIAZIDE [Concomitant]
     Indication: HYPERTENSION
     Dosage: 1 TABLET, DAILY
     Route: 048

REACTIONS (24)
  - ANAPHYLACTIC REACTION [None]
  - ASTHENIA [None]
  - CAROTID ARTERY OCCLUSION [None]
  - CAROTID ARTERY STENOSIS [None]
  - CEREBRAL HYPOPERFUSION [None]
  - COLD SWEAT [None]
  - CONFUSIONAL STATE [None]
  - CONVULSION [None]
  - DIARRHOEA [None]
  - DIZZINESS [None]
  - DYSSTASIA [None]
  - FAECAL INCONTINENCE [None]
  - FALL [None]
  - HAEMATOCHEZIA [None]
  - HAEMATOCRIT DECREASED [None]
  - HEAD INJURY [None]
  - HYPERHIDROSIS [None]
  - HYPOTENSION [None]
  - LOSS OF CONSCIOUSNESS [None]
  - MALAISE [None]
  - SYNCOPE [None]
  - TONIC CLONIC MOVEMENTS [None]
  - UNRESPONSIVE TO STIMULI [None]
  - URINARY INCONTINENCE [None]
